FAERS Safety Report 6536723-8 (Version None)
Quarter: 2010Q1

REPORT INFORMATION
  Report Type: 
  Country: None (occurrence: None)
  Receive Date: 20100113
  Receipt Date: 20100106
  Transmission Date: 20100710
  Serious: Yes (Other)
  Sender: FDA-Public Use
  Company Number: US-PFIZER INC-2010003168

PATIENT
  Sex: Male
  Weight: 70.295 kg

DRUGS (3)
  1. CHANTIX [Suspect]
     Indication: SMOKING CESSATION THERAPY
     Dosage: 1 MG, 2X/DAY
     Dates: start: 20091101, end: 20100101
  2. ALCOHOL [Interacting]
  3. MOBIC [Concomitant]
     Indication: ROTATOR CUFF SYNDROME
     Dosage: UNK

REACTIONS (3)
  - COMA [None]
  - DRUG INTERACTION [None]
  - VISION BLURRED [None]
